FAERS Safety Report 4787429-7 (Version None)
Quarter: 2005Q4

REPORT INFORMATION
  Report Type: 
  Country: None (occurrence: None)
  Receive Date: 20051003
  Receipt Date: 20050923
  Transmission Date: 20060501
  Serious: Yes (Other)
  Sender: FDA-Public Use
  Company Number: 2005-09-1453

PATIENT
  Age: 57 Year
  Sex: Female

DRUGS (1)
  1. TEMODAL [Suspect]
     Indication: OLIGODENDROGLIOMA
     Dosage: -1200 MG* ORAL
     Route: 048
     Dates: start: 20050922, end: 20050922

REACTIONS (2)
  - INAPPROPRIATE SCHEDULE OF DRUG ADMINISTRATION [None]
  - SUICIDE ATTEMPT [None]
